FAERS Safety Report 17550247 (Version 1)
Quarter: 2020Q1

REPORT INFORMATION
  Report Type: Report from Study
  Country: CR (occurrence: CR)
  Receive Date: 20200317
  Receipt Date: 20200317
  Transmission Date: 20200409
  Serious: Yes (Death, Hospitalization)
  Sender: FDA-Public Use
  Company Number: CR-BAYER-2020-034792

PATIENT
  Age: 72 Year
  Sex: Male

DRUGS (7)
  1. NEXAVAR [Suspect]
     Active Substance: SORAFENIB
     Indication: HEPATOCELLULAR CARCINOMA
     Dosage: 800 MG DAILY
     Route: 048
     Dates: start: 20191017
  2. DIMENHYDRINATE. [Concomitant]
     Active Substance: DIMENHYDRINATE
     Indication: VOMITING
     Dosage: 50 MG WHENEVER NECESSARY, MAXIMUM 2
     Route: 048
     Dates: start: 202001
  3. OMEPRAZOLE. [Concomitant]
     Active Substance: OMEPRAZOLE
     Indication: PROPHYLAXIS AGAINST DIARRHOEA
     Dosage: 20 MG EVERY DAY
     Route: 048
     Dates: start: 2018
  4. METFORMIN [Concomitant]
     Active Substance: METFORMIN HYDROCHLORIDE
     Indication: DIABETES MELLITUS
     Dosage: 2 TABLETS 500 MG PER DAY
     Dates: start: 2016
  5. LOVASTATIN. [Concomitant]
     Active Substance: LOVASTATIN
     Indication: CORONARY ARTERY DISEASE
     Dosage: 20 MG EVERY DAY
     Route: 048
     Dates: start: 2014
  6. LOPERAMIDE [Concomitant]
     Active Substance: LOPERAMIDE
     Indication: DIARRHOEA
     Dosage: 4 TABLETS PER DAY AND A MAXIMUM OF 6 TABLETS PER DAY
     Route: 048
     Dates: start: 2019
  7. FUROSEMIDE. [Concomitant]
     Active Substance: FUROSEMIDE
     Indication: FLUID RETENTION
     Dosage: 40 MG EVERY DAY
     Route: 048
     Dates: start: 2018

REACTIONS (9)
  - Speech disorder [Not Recovered/Not Resolved]
  - Diarrhoea [Recovering/Resolving]
  - Decreased appetite [Not Recovered/Not Resolved]
  - Asthenia [Not Recovered/Not Resolved]
  - Renal failure [Fatal]
  - Aphthous ulcer [None]
  - Dehydration [Recovering/Resolving]
  - Mouth injury [Not Recovered/Not Resolved]
  - Odynophagia [Not Recovered/Not Resolved]

NARRATIVE: CASE EVENT DATE: 20200113
